FAERS Safety Report 10373943 (Version 1)
Quarter: 2014Q1

REPORT INFORMATION
  Report Type: Spontaneous
  Country: US (occurrence: None)
  Receive Date: 20140306
  Receipt Date: 20140306
  Transmission Date: 20141002
  Serious: Yes (Hospitalization)
  Sender: FDA-Public Use
  Company Number: 163-21880-13013976

PATIENT
  Age: 70 Year
  Sex: Female
  Weight: 73.94 kg

DRUGS (6)
  1. REVLIMID (LENALIDOMIDE) (CAPSULES) [Suspect]
     Indication: PLASMA CELL MYELOMA
     Dosage: 25 MG, 21 IN 21 D, PO
     Route: 048
     Dates: start: 201208
  2. AMIODARONE [Concomitant]
  3. ASPIRIN (ACETYLSALICYLIC ACID) [Concomitant]
  4. CARBIDOPA [Concomitant]
  5. CYMBALTA [Concomitant]
  6. PRAMIPEXOLE [Concomitant]

REACTIONS (1)
  - Pneumonia bacterial [None]
